FAERS Safety Report 5808147-X (Version None)
Quarter: 2008Q3

REPORT INFORMATION
  Report Type: 
  Country: None (occurrence: None)
  Receive Date: 20080709
  Receipt Date: 20080701
  Transmission Date: 20090109
  Serious: Yes (Death, Other)
  Sender: FDA-Public Use
  Company Number: 163-21880-08041277

PATIENT
  Age: 88 Year
  Sex: Male

DRUGS (3)
  1. REVLIMID [Suspect]
     Indication: CHRONIC LYMPHOCYTIC LEUKAEMIA
     Dosage: 15 MG, DAILY X 3 DAYS, ORAL; 15 MG, QOD, ORAL
     Route: 048
     Dates: start: 20080204, end: 20080225
  2. REVLIMID [Suspect]
     Indication: CHRONIC LYMPHOCYTIC LEUKAEMIA
     Dosage: 15 MG, DAILY X 3 DAYS, ORAL; 15 MG, QOD, ORAL
     Route: 048
     Dates: start: 20080414, end: 20080416
  3. PREDNISONE TAB [Concomitant]

REACTIONS (3)
  - ANAEMIA [None]
  - LYMPHOCYTOSIS [None]
  - THROMBOCYTOPENIA [None]
